FAERS Safety Report 8696601 (Version 2)
Quarter: 2012Q4

REPORT INFORMATION
  Report Type: 
  Country: GB (occurrence: GB)
  Receive Date: 20120801
  Receipt Date: 20120904
  Transmission Date: 20130627
  Serious: No
  Sender: FDA-Public Use
  Company Number: GB-PFIZER INC-2012183645

PATIENT
  Age: 58 Year
  Sex: Female

DRUGS (1)
  1. ISTIN [Suspect]
     Dosage: 5 mg, daily

REACTIONS (1)
  - Tendonitis [Unknown]
